FAERS Safety Report 4984916-3 (Version None)
Quarter: 2006Q2

REPORT INFORMATION
  Report Type: 
  Country: None (occurrence: None)
  Receive Date: 20060426
  Receipt Date: 20060426
  Transmission Date: 20061013
  Serious: No
  Sender: FDA-Public Use
  Company Number: None

PATIENT
  Sex: Female
  Weight: 96.1626 kg

DRUGS (7)
  1. LEVSINEX [Suspect]
     Indication: IRRITABLE BOWEL SYNDROME
     Dosage: 0.125 MG QAM SL
     Route: 060
     Dates: start: 20051020, end: 20060201
  2. AUGMENTIN '125' [Concomitant]
  3. AZITHROMYCIN Z-PAK [Concomitant]
  4. IBUPROFEN [Concomitant]
  5. FLUCONAZOLE [Concomitant]
  6. LEVAQUIN [Concomitant]
  7. AMOXICILLIN [Concomitant]

REACTIONS (4)
  - OEDEMA PERIPHERAL [None]
  - SKIN DISORDER [None]
  - SKIN HYPERTROPHY [None]
  - STICKY SKIN [None]
